FAERS Safety Report 15496122 (Version 2)
Quarter: 2018Q4

REPORT INFORMATION
  Report Type: Spontaneous
  Country: US (occurrence: US)
  Receive Date: 20181012
  Receipt Date: 20181015
  Transmission Date: 20190205
  Serious: Yes (Hospitalization)
  Sender: FDA-Public Use
  Company Number: US-IMPAX LABORATORIES, INC-2018-IPXL-02940

PATIENT
  Age: 75 Year
  Sex: Male
  Weight: 84 kg

DRUGS (9)
  1. DONEPEZIL. [Concomitant]
     Active Substance: DONEPEZIL
     Indication: MEMORY IMPAIRMENT
     Dosage: 1 DF, QD (ONE TABLET, DAILY)
     Route: 048
     Dates: start: 2016
  2. RYTARY [Suspect]
     Active Substance: CARBIDOPA\LEVODOPA
     Dosage: UNK, FOUR CAPSULES IN AM, THREE CAPSULES AT 11 AM, THREE CAPSULES AT 3 PM, THREE CAPSULES AT 6 PM
     Route: 048
     Dates: start: 201808, end: 201808
  3. RYTARY [Suspect]
     Active Substance: CARBIDOPA\LEVODOPA
     Dosage: UNK, FOUR CAP IN AM, THREE CAP AT 11 AM, THREE CAP AT 3 PM, THREE CAP AT 6 PM, 1 CAP AT BED TIME
     Route: 048
     Dates: start: 201808
  4. TOVIAZ [Suspect]
     Active Substance: FESOTERODINE FUMARATE
     Indication: BLADDER DISORDER
     Dosage: UNK
     Route: 065
  5. RYTARY [Suspect]
     Active Substance: CARBIDOPA\LEVODOPA
     Indication: PARKINSON^S DISEASE
     Dosage: UNK
     Route: 048
     Dates: start: 201608, end: 201808
  6. GABAPENTIN. [Concomitant]
     Active Substance: GABAPENTIN
     Indication: PAIN IN JAW
     Dosage: 2 DF, BID (TWO CAPSULE TWO TIMES A DAY)
     Route: 048
     Dates: start: 2017
  7. QUETIAPINE. [Concomitant]
     Active Substance: QUETIAPINE
     Indication: PARKINSON^S DISEASE
     Dosage: SOMTINE 50 MG, AND SOMETIME 75 MG, 1.5 TABLET DAILY,AT NIGHT
     Route: 048
     Dates: start: 2017
  8. ASPIRIN. [Concomitant]
     Active Substance: ASPIRIN
     Indication: PRODUCT USED FOR UNKNOWN INDICATION
     Dosage: 81 MG, QD
     Route: 048
     Dates: start: 2014
  9. VITAMIN B12 [Concomitant]
     Active Substance: CYANOCOBALAMIN
     Indication: VITAMIN SUPPLEMENTATION
     Dosage: 1 DF, BID (ONE TABLET TWO TIMES A DAY)
     Route: 048
     Dates: start: 2012

REACTIONS (7)
  - Humerus fracture [Unknown]
  - Incontinence [Unknown]
  - Parkinson^s disease [Recovering/Resolving]
  - Confusional state [Unknown]
  - Nocturia [Unknown]
  - Therapeutic response shortened [Not Recovered/Not Resolved]
  - Fall [Unknown]

NARRATIVE: CASE EVENT DATE: 2018
